FAERS Safety Report 8396391-X (Version None)
Quarter: 2012Q2

REPORT INFORMATION
  Report Type: 
  Country: None (occurrence: None)
  Receive Date: 20120530
  Receipt Date: 20120523
  Transmission Date: 20120825
  Serious: Yes (Hospitalization, Disabling)
  Sender: FDA-Public Use
  Company Number: US-MERCK-1112USA00791

PATIENT
  Age: 79 Year
  Sex: Female
  Weight: 51 kg

DRUGS (6)
  1. ALENDRONATE SODIUM [Suspect]
     Route: 048
     Dates: start: 20080228, end: 20090101
  2. FOSAMAX [Suspect]
     Route: 048
  3. FOSAMAX [Suspect]
     Indication: OSTEOPENIA
     Route: 048
     Dates: start: 19970101, end: 20080101
  4. FOSAMAX [Suspect]
     Route: 048
  5. VITAMINS (UNSPECIFIED) [Concomitant]
     Route: 048
     Dates: start: 19800101
  6. FOSAMAX [Suspect]
     Indication: OSTEOPOROSIS
     Route: 048
     Dates: start: 19970101, end: 20080101

REACTIONS (42)
  - OSTEOPOROSIS [None]
  - INTERVERTEBRAL DISC PROTRUSION [None]
  - VULVOVAGINAL PRURITUS [None]
  - FUNGAL INFECTION [None]
  - VERTEBRAL FORAMINAL STENOSIS [None]
  - CHEST PAIN [None]
  - PNEUMONIA [None]
  - CONCUSSION [None]
  - HAEMATOMA [None]
  - EXOSTOSIS [None]
  - UPPER RESPIRATORY TRACT INFECTION [None]
  - LACERATION [None]
  - BLOOD PRESSURE INCREASED [None]
  - ANXIETY [None]
  - SPONDYLOLISTHESIS [None]
  - INTERVERTEBRAL DISC DISORDER [None]
  - INTERVERTEBRAL DISC DEGENERATION [None]
  - HERPES ZOSTER [None]
  - ROTATOR CUFF SYNDROME [None]
  - OSTEOARTHRITIS [None]
  - LUMBAR SPINAL STENOSIS [None]
  - JOINT DISLOCATION [None]
  - FEMUR FRACTURE [None]
  - MUSCLE STRAIN [None]
  - SYNOVIAL CYST [None]
  - MALAISE [None]
  - RASH [None]
  - PAIN IN EXTREMITY [None]
  - BRONCHITIS [None]
  - INTERVERTEBRAL DISC DISPLACEMENT [None]
  - CONTUSION [None]
  - ECCHYMOSIS [None]
  - FALL [None]
  - MUSCULOSKELETAL CHEST PAIN [None]
  - BACK PAIN [None]
  - ARTHRALGIA [None]
  - TRIGGER FINGER [None]
  - BURSITIS [None]
  - MENISCUS LESION [None]
  - SCIATICA [None]
  - LIGAMENT SPRAIN [None]
  - ECZEMA ASTEATOTIC [None]
